FAERS Safety Report 5056170-8 (Version None)
Quarter: 2006Q2

REPORT INFORMATION
  Report Type: 
  Country: None (occurrence: None)
  Receive Date: 20060616
  Receipt Date: 20050610
  Transmission Date: 20061013
  Serious: Yes (Other)
  Sender: FDA-Public Use
  Company Number: PHEH2005US06594

PATIENT
  Age: 95 Year
  Sex: Male

DRUGS (1)
  1. EXELON [Suspect]
     Indication: CONFUSIONAL STATE

REACTIONS (1)
  - BLOOD PRESSURE INCREASED [None]
